FAERS Safety Report 17091850 (Version 1)
Quarter: 2019Q4

REPORT INFORMATION
  Report Type: Spontaneous
  Country: US (occurrence: US)
  Receive Date: 20191129
  Receipt Date: 20191129
  Transmission Date: 20200122
  Serious: No
  Sender: FDA-Public Use
  Company Number: US-DRREDDYS-USA/USA/19/0116376

PATIENT
  Sex: Male

DRUGS (1)
  1. NICOTINE. [Suspect]
     Active Substance: NICOTINE
     Indication: TOBACCO USER
     Dosage: APPLIED HALF PATCH
     Route: 062
     Dates: start: 201911

REACTIONS (2)
  - Treatment noncompliance [Unknown]
  - Wrong technique in product usage process [Unknown]
